FAERS Safety Report 18302586 (Version 1)
Quarter: 2020Q3

REPORT INFORMATION
  Report Type: Spontaneous
  Country: US (occurrence: CA)
  Receive Date: 20200923
  Receipt Date: 20200923
  Transmission Date: 20201103
  Serious: Yes (Life-Threatening, Hospitalization, Other)
  Sender: FDA-Public Use
  Company Number: US-BAYER-2020-193437

PATIENT
  Age: 42 Year
  Sex: Male

DRUGS (26)
  1. CIPROFLOXACIN. [Suspect]
     Active Substance: CIPROFLOXACIN
     Indication: CONDITION AGGRAVATED
  2. TAMIFLU [Suspect]
     Active Substance: OSELTAMIVIR PHOSPHATE
     Indication: INFECTIVE PULMONARY EXACERBATION OF CYSTIC FIBROSIS
     Dosage: UNK
     Route: 048
  3. APO?TOBRAMYCIN [Suspect]
     Active Substance: TOBRAMYCIN
     Indication: CONDITION AGGRAVATED
     Dosage: UNK
     Route: 048
  4. DORNAVAC [Concomitant]
     Indication: PRODUCT USED FOR UNKNOWN INDICATION
     Dosage: UNK
  5. PULMOZYME [Concomitant]
     Active Substance: DORNASE ALFA
     Indication: INHALATION THERAPY
     Dosage: UNK
  6. INSULINE NPH [Concomitant]
     Active Substance: INSULIN PORK\INSULIN PURIFIED PORK
     Indication: PRODUCT USED FOR UNKNOWN INDICATION
     Dosage: UNK
  7. XOLAIR [Concomitant]
     Active Substance: OMALIZUMAB
     Indication: PRODUCT USED FOR UNKNOWN INDICATION
     Dosage: UNK
  8. PANCRELIPASE. [Concomitant]
     Active Substance: PANCRELIPASE
     Indication: PRODUCT USED FOR UNKNOWN INDICATION
     Dosage: UNK
  9. CAYSTON [Concomitant]
     Active Substance: AZTREONAM
     Indication: ANTIBIOTIC THERAPY
     Dosage: UNK
  10. HYDROCORTISONE. [Concomitant]
     Active Substance: HYDROCORTISONE
     Indication: PRODUCT USED FOR UNKNOWN INDICATION
     Dosage: UNK
  11. MONTELUKAST [Concomitant]
     Active Substance: MONTELUKAST SODIUM
     Indication: PRODUCT USED FOR UNKNOWN INDICATION
     Dosage: UNK
  12. VITAMINS NOS [Concomitant]
     Active Substance: VITAMINS
     Indication: PRODUCT USED FOR UNKNOWN INDICATION
     Dosage: UNK
  13. PMS AZITHROMYCIN [Concomitant]
     Active Substance: AZITHROMYCIN ANHYDROUS
     Indication: CYSTIC FIBROSIS
     Dosage: UNK
  14. BUDESONIDE;FORMOTEROL FUMARATE [Concomitant]
     Active Substance: BUDESONIDE\FORMOTEROL FUMARATE
     Indication: PRODUCT USED FOR UNKNOWN INDICATION
     Dosage: UNK
  15. BUDESONIDE. [Concomitant]
     Active Substance: BUDESONIDE
     Indication: PRODUCT USED FOR UNKNOWN INDICATION
     Dosage: UNK
  16. CIPROFLOXACIN. [Suspect]
     Active Substance: CIPROFLOXACIN
     Indication: INFECTIVE PULMONARY EXACERBATION OF CYSTIC FIBROSIS
     Dosage: UNK
     Route: 048
  17. VANCOMYCIN HYDROCHLORIDE. [Suspect]
     Active Substance: VANCOMYCIN HYDROCHLORIDE
     Indication: INFECTIVE PULMONARY EXACERBATION OF CYSTIC FIBROSIS
  18. MEROPENEM. [Suspect]
     Active Substance: MEROPENEM
     Indication: INFECTIVE PULMONARY EXACERBATION OF CYSTIC FIBROSIS
  19. TAMIFLU [Suspect]
     Active Substance: OSELTAMIVIR PHOSPHATE
     Indication: INFLUENZA LIKE ILLNESS
  20. APO?TOBRAMYCIN [Suspect]
     Active Substance: TOBRAMYCIN
     Indication: INFLUENZA LIKE ILLNESS
     Route: 042
  21. APO?TOBRAMYCIN [Suspect]
     Active Substance: TOBRAMYCIN
     Indication: INFECTIVE PULMONARY EXACERBATION OF CYSTIC FIBROSIS
     Dosage: UNK
     Route: 057
  22. VANCOMYCIN HYDROCHLORIDE. [Suspect]
     Active Substance: VANCOMYCIN HYDROCHLORIDE
     Indication: CONDITION AGGRAVATED
     Route: 042
  23. CICLESONIDE [Concomitant]
     Active Substance: CICLESONIDE
     Indication: PRODUCT USED FOR UNKNOWN INDICATION
     Dosage: UNK
  24. CIPROFLOXACIN. [Suspect]
     Active Substance: CIPROFLOXACIN
     Indication: INFLUENZA LIKE ILLNESS
  25. MEROPENEM. [Suspect]
     Active Substance: MEROPENEM
     Indication: CONDITION AGGRAVATED
     Route: 042
  26. SODIUM CHLORIDE. [Concomitant]
     Active Substance: SODIUM CHLORIDE
     Indication: PRODUCT USED FOR UNKNOWN INDICATION
     Dosage: UNK

REACTIONS (4)
  - Sepsis [Not Recovered/Not Resolved]
  - Staphylococcal sepsis [Not Recovered/Not Resolved]
  - Toxic epidermal necrolysis [Not Recovered/Not Resolved]
  - Rash morbilliform [Not Recovered/Not Resolved]
